FAERS Safety Report 16688241 (Version 1)
Quarter: 2019Q3

REPORT INFORMATION
  Report Type: Report from Study
  Country: CA (occurrence: CA)
  Receive Date: 20190809
  Receipt Date: 20190809
  Transmission Date: 20191004
  Serious: Yes (Death, Hospitalization)
  Sender: FDA-Public Use
  Company Number: CA-ACTELION-A-US2019-194008

PATIENT
  Age: 64 Year
  Sex: Female

DRUGS (6)
  1. ADCIRCA [Suspect]
     Active Substance: TADALAFIL
     Indication: PRODUCT USED FOR UNKNOWN INDICATION
     Dosage: UNK
     Route: 065
  2. UPTRAVI [Suspect]
     Active Substance: SELEXIPAG
     Indication: PULMONARY ARTERIAL HYPERTENSION
     Dosage: 1200 MCG, BID
     Route: 048
     Dates: start: 20180514
  3. ZAROXOLYN [Concomitant]
     Active Substance: METOLAZONE
  4. OXYGEN. [Concomitant]
     Active Substance: OXYGEN
     Dosage: 5 LITERS, 24/7
  5. FUROSEMIDE. [Concomitant]
     Active Substance: FUROSEMIDE
  6. EURO-K [Concomitant]

REACTIONS (1)
  - Death [Fatal]

NARRATIVE: CASE EVENT DATE: 20190729
